FAERS Safety Report 5463927-8 (Version None)
Quarter: 2007Q3

REPORT INFORMATION
  Report Type: 
  Country: None (occurrence: None)
  Receive Date: 20070921
  Receipt Date: 20070611
  Transmission Date: 20080115
  Serious: No
  Sender: FDA-Public Use
  Company Number: A0655025A

PATIENT
  Age: 75 Year
  Sex: Female

DRUGS (3)
  1. AVANDARYL [Suspect]
     Dosage: 1TAB PER DAY
     Route: 048
  2. VASOTEC [Concomitant]
  3. GLUCOPHAGE [Concomitant]

REACTIONS (1)
  - PAIN IN EXTREMITY [None]
